FAERS Safety Report 9507656 (Version 1)
Quarter: 2013Q1

REPORT INFORMATION
  Report Type: Spontaneous
  Country: US (occurrence: None)
  Receive Date: 20130305
  Receipt Date: 20130305
  Transmission Date: 20140127
  Serious: Yes (Disabling)
  Sender: FDA-Public Use
  Company Number: 163-21880-12052867

PATIENT
  Age: 74 Year
  Sex: Female
  Weight: 62.6 kg

DRUGS (26)
  1. REVLIMID [Suspect]
     Indication: MYELODYSPLASTIC SYNDROME
     Route: 048
     Dates: start: 20111206
  2. NEUPOGEN (FILGRASTIM) [Concomitant]
  3. PROCRIT [Concomitant]
  4. ARANESP (DARBEPOETIN ALFA) [Concomitant]
  5. AMOXIL [Concomitant]
  6. BONIVA (IBANDRONATE SODIUM) [Concomitant]
  7. CALTRATE (CALCIUM CARBONATE) [Concomitant]
  8. COMPAZINE (PROCHLORPERAZINE EDISYLATE) [Concomitant]
  9. DMB [Concomitant]
  10. FERREX (HEMOCYE0F EKUXUR) [Concomitant]
  11. FLEXERIL (CYCLOBENZAPRINE HYDROCHLORIDE) [Concomitant]
  12. IMODIUM [Concomitant]
  13. K-DUR (POTASSIUM CHLORIDE) [Concomitant]
  14. K-LYTE/CL (POTASSIUM CHLORIDE) [Concomitant]
  15. KEFLEX (CEFALEXIN MONOHYDRATE) [Concomitant]
  16. LASIX (FUROSEMIDE) [Concomitant]
  17. LEAVQUIN (LEVOFLOXACIN) [Concomitant]
  18. LOMOTIL (LOMOTIL) [Concomitant]
  19. LORTAB (VICODIN) [Concomitant]
  20. LOVAZA (OMEGA-3 MARINE TRIGLYCERIDES) [Concomitant]
  21. VITAMINS [Concomitant]
  22. NAPROSYN (NAPROSYN) [Concomitant]
  23. PEPCID (FAMOTIDINE) [Concomitant]
  24. POTASSIUM CHLORIDE (PORASSIUM CHLORIDE) [Concomitant]
  25. SYNTHROID (LEVOTHYROXINE SODIUM) [Concomitant]
  26. VALTREX (VALACICULOVIR HYDROCHLORIDE) [Concomitant]

REACTIONS (1)
  - White blood cell count decreased [None]
